FAERS Safety Report 17924100 (Version 2)
Quarter: 2020Q3

REPORT INFORMATION
  Report Type: Spontaneous
  Country: US (occurrence: US)
  Receive Date: 20200622
  Receipt Date: 20200701
  Transmission Date: 20201103
  Serious: Yes (Other)
  Sender: FDA-Public Use
  Company Number: US-PFIZER INC-2020238541

PATIENT
  Age: 62 Year
  Sex: Female
  Weight: 112.94 kg

DRUGS (1)
  1. TOVIAZ [Suspect]
     Active Substance: FESOTERODINE FUMARATE
     Indication: POLLAKIURIA
     Dosage: 8 MG, 1X/DAY (8MG; ONE TIME A DAY)

REACTIONS (4)
  - Hypermetropia [Unknown]
  - Memory impairment [Unknown]
  - Body height decreased [Unknown]
  - Eye disorder [Unknown]
